APPROVED DRUG PRODUCT: VENTOLIN
Active Ingredient: ALBUTEROL SULFATE
Strength: EQ 0.083% BASE **Federal Register determination that product was not discontinued or withdrawn for safety or effectiveness reasons**
Dosage Form/Route: SOLUTION;INHALATION
Application: N019773 | Product #001
Applicant: GLAXOSMITHKLINE
Approved: Apr 23, 1992 | RLD: Yes | RS: No | Type: DISCN